FAERS Safety Report 9266755 (Version 1)
Quarter: 2013Q2

REPORT INFORMATION
  Report Type: Report from Study
  Country: FR (occurrence: FR)
  Receive Date: 20130502
  Receipt Date: 20130502
  Transmission Date: 20140414
  Serious: Yes (Hospitalization)
  Sender: FDA-Public Use
  Company Number: FR-BRISTOL-MYERS SQUIBB COMPANY-18826487

PATIENT
  Age: 58 Year
  Sex: Female
  Weight: 61 kg

DRUGS (3)
  1. PACLITAXEL [Suspect]
     Indication: NON-SMALL CELL LUNG CANCER
     Dosage: 1 DF-320(UNIT NOS), MOST RECENT DOSE RECEIVED ON 06-JUL-2011
     Route: 042
     Dates: start: 20110706
  2. CARBOPLATIN [Suspect]
     Indication: NON-SMALL CELL LUNG CANCER
     Dosage: 1 DF-670 (UNIT NOS), MOST RECENT DOSE RECEIVED ON 06-JUL-2011
     Route: 042
     Dates: start: 20110706
  3. BEVACIZUMAB [Suspect]
     Indication: NON-SMALL CELL LUNG CANCER
     Dosage: 1 DF-930 (UNIT NOS), MOST RECENT DOSE RECEIVED ON 06-JUL-2011
     Route: 042
     Dates: start: 20110706

REACTIONS (2)
  - Pericardial effusion [Not Recovered/Not Resolved]
  - Pyrexia [Recovered/Resolved]
